FAERS Safety Report 4347716-3 (Version None)
Quarter: 2004Q2

REPORT INFORMATION
  Report Type: 
  Country: None (occurrence: None)
  Receive Date: 20040427
  Receipt Date: 20031002
  Transmission Date: 20050107
  Serious: Yes (Hospitalization, Other)
  Sender: FDA-Public Use
  Company Number: US-BRISTOL-MYERS SQUIBB COMPANY-12399473

PATIENT
  Age: 82 Year
  Sex: Female

DRUGS (6)
  1. BMS188667 [Suspect]
     Indication: RHEUMATOID ARTHRITIS
     Route: 042
     Dates: start: 20030121, end: 20030911
  2. METHOTREXATE [Suspect]
     Dates: start: 20020911
  3. AMLODIPINE BESYLATE [Concomitant]
     Dates: start: 19860101
  4. SIMVASTATIN [Concomitant]
     Dates: start: 19990101
  5. FOLIC ACID [Concomitant]
     Dates: start: 20011126
  6. NABUMETONE [Concomitant]
     Dates: start: 20011126

REACTIONS (2)
  - AUTOIMMUNE THYROIDITIS [None]
  - B-CELL LYMPHOMA [None]
